FAERS Safety Report 5918042-3 (Version None)
Quarter: 2008Q4

REPORT INFORMATION
  Report Type: 
  Country: None (occurrence: None)
  Receive Date: 20081009
  Receipt Date: 20080924
  Transmission Date: 20090506
  Serious: Yes (Hospitalization)
  Sender: FDA-Public Use
  Company Number: 2008S1002411

PATIENT
  Age: 40 Year
  Sex: Male

DRUGS (9)
  1. MIRTAZAPINE [Suspect]
     Indication: ANXIETY
     Dosage: 45 MG;DAILY; 30 MG;DAILY
     Dates: start: 19990501, end: 20010901
  2. MIRTAZAPINE [Suspect]
     Indication: DEPRESSION
     Dosage: 45 MG;DAILY; 30 MG;DAILY
     Dates: start: 19990501, end: 20010901
  3. MIRTAZAPINE [Suspect]
     Indication: ANXIETY
     Dosage: 45 MG;DAILY; 30 MG;DAILY
     Dates: start: 20010901
  4. MIRTAZAPINE [Suspect]
     Indication: DEPRESSION
     Dosage: 45 MG;DAILY; 30 MG;DAILY
     Dates: start: 20010901
  5. BUSPIRONE HCL [Concomitant]
  6. DOSULEPIN [Concomitant]
     Indication: CONDITION AGGRAVATED
  7. LOFEPRAMINE [Concomitant]
  8. PAROXETINE HCL [Concomitant]
  9. VENLAFAXINE HCL [Concomitant]

REACTIONS (3)
  - GAMMA-GLUTAMYLTRANSFERASE INCREASED [None]
  - PANCREATITIS [None]
  - UNEVALUABLE EVENT [None]
